FAERS Safety Report 12509204 (Version 2)
Quarter: 2016Q3

REPORT INFORMATION
  Report Type: Spontaneous
  Country: US (occurrence: US)
  Receive Date: 20160629
  Receipt Date: 20160708
  Transmission Date: 20161109
  Serious: Yes (Other)
  Sender: FDA-Public Use
  Company Number: US-BOIRON INC.-2016BOR00028

PATIENT
  Sex: Female
  Weight: 14.51 kg

DRUGS (1)
  1. TARENTULA HISPANA [Suspect]
     Active Substance: HOMEOPATHICS
     Indication: AGGRESSION
     Dosage: 3 DOSAGE UNITS, UNK
     Route: 048
     Dates: start: 201605

REACTIONS (2)
  - Febrile convulsion [Recovered/Resolved]
  - Pyrexia [Recovered/Resolved]
